FAERS Safety Report 5322391-X (Version None)
Quarter: 2007Q2

REPORT INFORMATION
  Report Type: 
  Country: None (occurrence: None)
  Receive Date: 20070511
  Receipt Date: 20070502
  Transmission Date: 20071010
  Serious: Yes (Hospitalization)
  Sender: FDA-Public Use
  Company Number: FR-ELI_LILLY_AND_COMPANY-FR200705000354

PATIENT
  Age: 76 Year
  Sex: Female

DRUGS (3)
  1. FORTEO [Suspect]
     Indication: OSTEOPOROSIS
     Dosage: 20 UG, DAILY (1/D)
     Route: 058
     Dates: start: 20060424
  2. KARDEGIC [Concomitant]
     Indication: CARDIAC DISORDER
  3. TRIVASTAL [Concomitant]
     Indication: POOR PERIPHERAL CIRCULATION

REACTIONS (3)
  - BLADDER PROLAPSE [None]
  - HAEMATOMA INFECTION [None]
  - URINARY TRACT INFECTION [None]
